FAERS Safety Report 4441244-2 (Version None)
Quarter: 2004Q3

REPORT INFORMATION
  Report Type: 
  Country: None (occurrence: None)
  Receive Date: 20040728
  Receipt Date: 20040401
  Transmission Date: 20050211
  Serious: No
  Sender: FDA-Public Use
  Company Number: USA040463884

PATIENT
  Age: 43 Year
  Sex: Male
  Weight: 87 kg

DRUGS (3)
  1. STRATTERA [Suspect]
     Indication: ANXIETY
     Dosage: 40 MG AT NOON
     Dates: start: 20040401
  2. STRATTERA [Suspect]
     Indication: DEPRESSION
     Dosage: 40 MG AT NOON
     Dates: start: 20040401
  3. XANAX [Concomitant]

REACTIONS (2)
  - ANXIETY [None]
  - FEELING COLD [None]
